FAERS Safety Report 10187894 (Version 1)
Quarter: 2014Q2

REPORT INFORMATION
  Report Type: Spontaneous
  Country: US (occurrence: US)
  Receive Date: 20140522
  Receipt Date: 20140522
  Transmission Date: 20141212
  Serious: No
  Sender: FDA-Public Use
  Company Number: US-SANOFI-AVENTIS-2013SA093219

PATIENT
  Age: 55 Year
  Sex: Male

DRUGS (3)
  1. LANTUS SOLOSTAR [Suspect]
     Indication: TYPE 2 DIABETES MELLITUS
     Dosage: TAKEN FROM: 1 1/2 YRS DOSE:40 UNIT(S)
     Route: 051
  2. METFORMIN [Suspect]
     Route: 065
  3. SOLOSTAR [Concomitant]

REACTIONS (3)
  - Nausea [Unknown]
  - Injection site nodule [Unknown]
  - Blood glucose increased [Unknown]
